FAERS Safety Report 10740033 (Version 1)
Quarter: 2015Q1

REPORT INFORMATION
  Report Type: Spontaneous
  Country: ES (occurrence: ES)
  Receive Date: 20150127
  Receipt Date: 20150127
  Transmission Date: 20150721
  Serious: Yes (Other)
  Sender: FDA-Public Use
  Company Number: ES-AMGEN-ESPSP2015005360

PATIENT
  Age: 61 Year

DRUGS (6)
  1. PROLIA [Suspect]
     Active Substance: DENOSUMAB
     Indication: OSTEOPOROSIS
     Dosage: 60 MG, UNK
     Route: 065
     Dates: start: 20140708
  2. RANITIDINA CINFA [Concomitant]
     Dosage: 300 MG, UNK
     Dates: start: 2014
  3. OMEPRAZOL CINFA [Concomitant]
     Dosage: 20 MG, UNK
     Dates: start: 2013
  4. ESCITALOPRAM MYLAN [Concomitant]
     Dosage: 10 MG, UNK
     Dates: start: 2013
  5. BONESIL D FLAS [Concomitant]
     Dosage: 150MG/400 IU
     Dates: start: 2014
  6. ATORVASTATINA CINFA [Concomitant]
     Dosage: 20 MG, UNK
     Dates: start: 2011

REACTIONS (1)
  - Pyelonephritis [Recovering/Resolving]

NARRATIVE: CASE EVENT DATE: 20150109
